FAERS Safety Report 19954620 (Version 2)
Quarter: 2021Q4

REPORT INFORMATION
  Report Type: Report from Study
  Country: GB (occurrence: KR)
  Receive Date: 20211014
  Receipt Date: 20211025
  Transmission Date: 20220303
  Serious: Yes (Hospitalization, Other)
  Sender: FDA-Public Use
  Company Number: KR-ROCHE-2695073

PATIENT
  Age: 76 Year
  Sex: Female
  Weight: 58 kg

DRUGS (22)
  1. ERLOTINIB [Suspect]
     Active Substance: ERLOTINIB
     Indication: Non-small cell lung cancer
     Dosage: 100 MG, ONCE DAILY (06/OCT/2020 DATE OF LAST DOSE PRIOR TO SAE ONSET DATE)
     Route: 048
     Dates: start: 20170731
  2. ERLOTINIB [Suspect]
     Active Substance: ERLOTINIB
     Route: 048
     Dates: start: 20170821
  3. ERLOTINIB [Suspect]
     Active Substance: ERLOTINIB
     Dosage: UNK UNK, UNKNOWN FREQ.
     Route: 065
     Dates: start: 20201020
  4. ERLOTINIB [Suspect]
     Active Substance: ERLOTINIB
     Dosage: 100 MG, ONCE DAILY (25/SEP/2021 DATE OF LAST DOSE PRIOR TO SAE)
     Route: 048
     Dates: end: 20210926
  5. ERLOTINIB [Suspect]
     Active Substance: ERLOTINIB
     Route: 048
     Dates: start: 20211001
  6. BEVACIZUMAB [Suspect]
     Active Substance: BEVACIZUMAB
     Indication: Non-small cell lung cancer
     Dosage: 840 MG, EVERY 3 WEEKS (06/OCT/2020 DATE OF LAST DOSE PRIOR TO SAE ONSET DATE)
     Route: 042
     Dates: start: 20170731
  7. BEVACIZUMAB [Suspect]
     Active Substance: BEVACIZUMAB
     Dosage: 930 MG, EVERY 3 WEEKS (07/SEP/2021 DATE OF LAST DOSE PRIOR TO SAE)
     Route: 042
     Dates: end: 20210929
  8. Trasphen [Concomitant]
     Indication: Product used for unknown indication
     Dosage: UNK UNK, UNKNOWN FREQ.
     Route: 065
     Dates: start: 2017
  9. Neurocover [Concomitant]
     Indication: Product used for unknown indication
     Dosage: 0.3 G/T, UNKNOWN FREQ.
     Route: 065
     Dates: start: 2017
  10. Omedoc [Concomitant]
     Indication: Product used for unknown indication
     Dosage: 10MG/T, UNKNOWN FREQ.
     Route: 065
     Dates: start: 2017
  11. NORVASC [Concomitant]
     Active Substance: AMLODIPINE BESYLATE
     Indication: Product used for unknown indication
     Dosage: 5MG/T UNKNOWN FREQ.
     Route: 065
     Dates: start: 20180702
  12. Kanarb [Concomitant]
     Indication: Product used for unknown indication
     Dosage: 120MG/T UNKNOWN FREQ.
     Route: 065
     Dates: start: 20180702
  13. ALDACTONE [Concomitant]
     Active Substance: SPIRONOLACTONE
     Indication: Product used for unknown indication
     Dosage: 25MG/T, UNKNOWN FREQ.
     Route: 065
     Dates: start: 20190104
  14. CARDURA XL [Concomitant]
     Active Substance: DOXAZOSIN MESYLATE
     Indication: Product used for unknown indication
     Route: 065
  15. HYGROTON [Concomitant]
     Active Substance: CHLORTHALIDONE
     Indication: Product used for unknown indication
     Dosage: 12.5MG/T UNKNOWN FREQ.
     Route: 065
     Dates: start: 20190104
  16. CARVEDILOL [Concomitant]
     Active Substance: CARVEDILOL
     Indication: Product used for unknown indication
     Route: 065
     Dates: start: 20191213
  17. LOPERAMIDE [Concomitant]
     Active Substance: LOPERAMIDE
     Indication: Product used for unknown indication
     Route: 065
     Dates: start: 20180521
  18. ESOMEPRAZOLE. [Concomitant]
     Active Substance: ESOMEPRAZOLE MAGNESIUM
     Indication: Product used for unknown indication
     Route: 065
     Dates: start: 20191014
  19. CODEINE [Concomitant]
     Active Substance: CODEINE
     Indication: Product used for unknown indication
     Route: 065
     Dates: start: 20191125
  20. MINOCIN [Concomitant]
     Active Substance: MINOCYCLINE HYDROCHLORIDE
     Indication: Product used for unknown indication
     Route: 065
     Dates: start: 20200330
  21. XYZAL [Concomitant]
     Active Substance: LEVOCETIRIZINE DIHYDROCHLORIDE
     Indication: Product used for unknown indication
     Route: 065
     Dates: start: 20200330
  22. SPIRONOLACTONE [Concomitant]
     Active Substance: SPIRONOLACTONE
     Indication: Product used for unknown indication
     Dosage: UNK UNK, UNKNOWN FREQ.
     Route: 065
     Dates: start: 20210219

REACTIONS (2)
  - Blood creatinine increased [Recovered/Resolved]
  - Cholecystitis [Not Recovered/Not Resolved]

NARRATIVE: CASE EVENT DATE: 20201008
